FAERS Safety Report 20527385 (Version 1)
Quarter: 2022Q1

REPORT INFORMATION
  Report Type: Spontaneous
  Country: HU (occurrence: HU)
  Receive Date: 20220228
  Receipt Date: 20220228
  Transmission Date: 20220423
  Serious: Yes (Other)
  Sender: FDA-Public Use
  Company Number: HU-NOVARTISPH-NVSC2022HU044131

PATIENT
  Age: 67 Year
  Sex: Female

DRUGS (2)
  1. TAFINLAR [Suspect]
     Active Substance: DABRAFENIB MESYLATE
     Indication: Lung carcinoma cell type unspecified stage IV
     Dosage: UNK
     Route: 065
  2. MEKINIST [Suspect]
     Active Substance: TRAMETINIB DIMETHYL SULFOXIDE
     Indication: Lung carcinoma cell type unspecified stage IV
     Dosage: UNK
     Route: 065

REACTIONS (9)
  - Renal impairment [Recovered/Resolved]
  - Dysphonia [Unknown]
  - Insomnia [Unknown]
  - Liver function test increased [Recovered/Resolved]
  - Blood uric acid increased [Unknown]
  - Blood calcium increased [Unknown]
  - Fatigue [Unknown]
  - Pyrexia [Unknown]
  - Malaise [Unknown]
